FAERS Safety Report 7780548-2 (Version None)
Quarter: 2011Q3

REPORT INFORMATION
  Report Type: 
  Country: None (occurrence: None)
  Receive Date: 20110927
  Receipt Date: 20110606
  Transmission Date: 20111222
  Serious: No
  Sender: FDA-Public Use
  Company Number: US-ASTRAZENECA-2010SE53644

PATIENT
  Sex: Female

DRUGS (4)
  1. CLONAZEPAM [Concomitant]
  2. SEROQUEL [Suspect]
     Route: 048
  3. SEROQUEL [Suspect]
     Route: 048
  4. CLONAZEPAM [Concomitant]

REACTIONS (10)
  - DRUG DOSE OMISSION [None]
  - TENSION [None]
  - ANXIETY [None]
  - TINNITUS [None]
  - NERVOUSNESS [None]
  - PAIN [None]
  - FIBROMYALGIA [None]
  - SLEEP DISORDER DUE TO GENERAL MEDICAL CONDITION, INSOMNIA TYPE [None]
  - PANIC ATTACK [None]
  - DEPRESSION [None]
